FAERS Safety Report 8597168-2 (Version None)
Quarter: 2012Q3

REPORT INFORMATION
  Report Type: 
  Country: None (occurrence: None)
  Receive Date: 20120816
  Receipt Date: 20120807
  Transmission Date: 20120928
  Serious: No
  Sender: FDA-Public Use
  Company Number: US-BIOGENIDEC-2012BI030420

PATIENT
  Sex: Male

DRUGS (3)
  1. BENADRYL [Concomitant]
     Indication: PREMEDICATION
     Dates: start: 20120601
  2. PREDNISONE TAB [Concomitant]
     Indication: PREMEDICATION
     Dates: start: 20120601
  3. TYSABRI [Suspect]
     Indication: MULTIPLE SCLEROSIS
     Route: 042
     Dates: start: 20100721

REACTIONS (5)
  - NAUSEA [None]
  - TRIGEMINAL NEURALGIA [None]
  - PAIN IN EXTREMITY [None]
  - HYPOAESTHESIA [None]
  - CHEST DISCOMFORT [None]
